FAERS Safety Report 10209726 (Version 1)
Quarter: 2014Q2

REPORT INFORMATION
  Report Type: Spontaneous
  Country: US (occurrence: US)
  Receive Date: 20140602
  Receipt Date: 20140602
  Transmission Date: 20141212
  Serious: Yes (Other)
  Sender: FDA-Public Use
  Company Number: US-SUN PHARMACEUTICAL INDUSTRIES LTD-2014SUN01181

PATIENT
  Sex: 0

DRUGS (6)
  1. BUPROPION HYDROCHLORIDE EXTENDED-RELEASE TABLETS, USP (SR) 150MG [Suspect]
     Indication: DEPRESSION
     Dosage: 150 MG, BID
     Route: 065
  2. LISINOPRIL [Concomitant]
  3. ADVAIR [Concomitant]
  4. OMEPRAZOLE [Concomitant]
  5. LOVASTATIN [Concomitant]
  6. METOPROLOL [Concomitant]

REACTIONS (7)
  - Rhinorrhoea [Not Recovered/Not Resolved]
  - Suicidal behaviour [Recovered/Resolved]
  - Anxiety [Recovered/Resolved]
  - Weight decreased [Recovered/Resolved]
  - Nausea [Recovered/Resolved]
  - Fatigue [Recovered/Resolved]
  - Tremor [Recovered/Resolved]
